FAERS Safety Report 7535231-5 (Version None)
Quarter: 2011Q2

REPORT INFORMATION
  Report Type: 
  Country: None (occurrence: None)
  Receive Date: 20110609
  Receipt Date: 20080108
  Transmission Date: 20111010
  Serious: Yes (Death, Hospitalization)
  Sender: FDA-Public Use
  Company Number: PHNU2007DE03637

PATIENT
  Sex: Female
  Weight: 53 kg

DRUGS (6)
  1. CAPECITABINE [Concomitant]
     Dosage: 2000 MG, UNK
     Dates: start: 20061208, end: 20061221
  2. CAPECITABINE [Concomitant]
     Dosage: 2000 MG, UNK
     Dates: start: 20070218, end: 20070303
  3. ANTIBIOTICS [Concomitant]
  4. ZOLEDRONIC ACID [Suspect]
     Indication: METASTASES TO BONE
     Dosage: 4 MG, QMO
     Route: 042
     Dates: start: 20061211
  5. VINORELBINE [Concomitant]
     Dates: start: 20070618, end: 20070709
  6. CISPLATIN [Concomitant]
     Route: 032

REACTIONS (7)
  - VENOUS THROMBOSIS [None]
  - RESPIRATORY FAILURE [None]
  - NEOPLASM MALIGNANT [None]
  - STAPHYLOCOCCAL SEPSIS [None]
  - CEREBELLAR HAEMORRHAGE [None]
  - INFECTION [None]
  - PYREXIA [None]
